FAERS Safety Report 5321618-8 (Version None)
Quarter: 2007Q1

REPORT INFORMATION
  Report Type: 
  Country: None (occurrence: None)
  Receive Date: 20070220
  Receipt Date: 20070110
  Transmission Date: 20070707
  Serious: No
  Sender: FDA-Public Use
  Company Number: TPA2007A00103

PATIENT
  Sex: Male

DRUGS (2)
  1. ROZEREM [Suspect]
     Dosage: 8 MG, PER ORAL
     Route: 048
     Dates: start: 20061201, end: 20061201
  2. UNKNOWN MEDICATIONS (ALL OTHER THERAPEUTIC PRODUCTS) [Concomitant]

REACTIONS (1)
  - RASH [None]
